FAERS Safety Report 8023444-8 (Version None)
Quarter: 2012Q1

REPORT INFORMATION
  Report Type: 
  Country: None (occurrence: None)
  Receive Date: 20120105
  Receipt Date: 20111229
  Transmission Date: 20120608
  Serious: Yes (Other)
  Sender: FDA-Public Use
  Company Number: US-BIOGENIDEC-2011BI047829

PATIENT
  Age: 26 Year
  Sex: Female

DRUGS (3)
  1. TYSABRI [Suspect]
     Indication: MULTIPLE SCLEROSIS
     Route: 042
     Dates: start: 20060901, end: 20110826
  2. DILANTIN [Concomitant]
     Indication: CONVULSION
     Dates: start: 20060101
  3. LAMICTAL [Concomitant]
     Indication: CONVULSION
     Dates: start: 20111101

REACTIONS (9)
  - HEADACHE [None]
  - NEURALGIA [None]
  - CONVULSION [None]
  - SPEECH DISORDER [None]
  - MUSCULAR WEAKNESS [None]
  - ARTHRALGIA [None]
  - PAIN IN EXTREMITY [None]
  - MUSCLE ATROPHY [None]
  - GAIT DISTURBANCE [None]
